FAERS Safety Report 10353376 (Version 1)
Quarter: 2014Q3

REPORT INFORMATION
  Report Type: Spontaneous
  Country: NL (occurrence: NL)
  Receive Date: 20140731
  Receipt Date: 20140731
  Transmission Date: 20150326
  Serious: Yes (Hospitalization)
  Sender: FDA-Public Use
  Company Number: NL-AMGEN-NLDSP2014057009

PATIENT
  Age: 79 Year
  Sex: Male

DRUGS (1)
  1. XGEVA [Suspect]
     Active Substance: DENOSUMAB
     Indication: PRODUCT USED FOR UNKNOWN INDICATION
     Dosage: 120 MG, QWK
     Route: 058
     Dates: start: 20140626

REACTIONS (2)
  - Abnormal behaviour [Unknown]
  - Disorientation [Unknown]

NARRATIVE: CASE EVENT DATE: 20140720
